FAERS Safety Report 8695110 (Version 2)
Quarter: 2013Q4

REPORT INFORMATION
  Report Type: Spontaneous
  Country: US (occurrence: US)
  Receive Date: 20120731
  Receipt Date: 20131106
  Transmission Date: 20140711
  Serious: Yes (Hospitalization, Other)
  Sender: FDA-Public Use
  Company Number: US-009507513-1207USA010468

PATIENT
  Age: 54 Year
  Sex: Female

DRUGS (3)
  1. ZOCOR [Suspect]
     Dosage: 20 MG, UNK
     Route: 048
  2. ROCEFIN [Suspect]
     Dosage: 1 G, UNK
     Route: 030
  3. PANTOPAN [Suspect]
     Dosage: 20 MG, QD
     Route: 048

REACTIONS (6)
  - Blood lactate dehydrogenase increased [Unknown]
  - Aspartate aminotransferase increased [Unknown]
  - Gamma-glutamyltransferase increased [Unknown]
  - Pyrexia [Unknown]
  - Asthenia [Unknown]
  - Alanine aminotransferase increased [Unknown]
